FAERS Safety Report 9515993 (Version 2)
Quarter: 2013Q3

REPORT INFORMATION
  Report Type: Spontaneous
  Country: TH (occurrence: TH)
  Receive Date: 20130911
  Receipt Date: 20130911
  Transmission Date: 20140515
  Serious: Yes (Life-Threatening, Other)
  Sender: FDA-Public Use
  Company Number: TH-TAKEDA-THQ2012A01704

PATIENT
  Age: 73 Year
  Sex: Female
  Weight: 62 kg

DRUGS (14)
  1. ACTOS [Suspect]
     Indication: DIABETES MELLITUS
     Route: 048
     Dates: start: 200805
  2. UTMOS [Concomitant]
     Route: 048
     Dates: start: 201004
  3. DIAMICRON [Concomitant]
     Dates: start: 200805
  4. AMARYL [Concomitant]
     Dates: start: 200805
  5. GLUCOBAY [Concomitant]
     Dates: start: 200805
  6. JANUVIA [Concomitant]
     Dates: start: 201004
  7. GLIPIZIDE [Concomitant]
     Dates: start: 201004
  8. ERYTHROPOETIN INJECTION [Concomitant]
     Dates: start: 201101
  9. ANTIBIOTIC [Concomitant]
     Dates: start: 20120123
  10. CARDIPINE [Concomitant]
     Dates: start: 20120123
  11. STATIN [Concomitant]
     Dates: start: 20120123
  12. DILTIAZEM [Concomitant]
     Dates: start: 20120123
  13. MADOPAR [Concomitant]
     Dates: start: 20120123
  14. SIFROL [Concomitant]
     Dates: start: 20120123

REACTIONS (1)
  - Bladder cancer [Not Recovered/Not Resolved]
